FAERS Safety Report 7483249-3 (Version None)
Quarter: 2011Q2

REPORT INFORMATION
  Report Type: 
  Country: None (occurrence: None)
  Receive Date: 20110517
  Receipt Date: 20101001
  Transmission Date: 20111010
  Serious: Yes (Life-Threatening)
  Sender: FDA-Public Use
  Company Number: US-B.I. PHARMACEUTICALS,INC./RIDGEFIELD-2010-BP-07815BP

PATIENT
  Sex: Female
  Weight: 86.2 kg

DRUGS (11)
  1. PREGABALIN [Suspect]
     Indication: RESTLESS LEGS SYNDROME
     Dates: start: 20100303, end: 20100406
  2. ALKA SELTZER PLUS [Concomitant]
     Dates: start: 20100505, end: 20100518
  3. CALTRATE (CALCIUM CARBONATE) [Concomitant]
     Route: 048
     Dates: start: 20090101
  4. ALKA SELTZER PLUS [Concomitant]
     Dates: start: 20100428, end: 20100528
  5. HYDROCHLOROTHIAZIDE [Concomitant]
     Route: 048
     Dates: start: 20090101
  6. PRAMIPEXOLE DIHYDROCHLORIDE [Suspect]
     Indication: RESTLESS LEGS SYNDROME
     Dates: end: 20100526
  7. ACETAMINOPHEN [Concomitant]
     Route: 048
     Dates: start: 20050101
  8. PLACEBO [Suspect]
     Indication: RESTLESS LEGS SYNDROME
  9. MOTRIN [Concomitant]
     Route: 048
     Dates: start: 20050101
  10. HYZAAR [Concomitant]
     Route: 048
     Dates: start: 20090101
  11. VITAMIN B-12 [Concomitant]
     Dates: start: 20100504

REACTIONS (4)
  - SINUSITIS [None]
  - MUSCLE SPASMS [None]
  - SUICIDAL IDEATION [None]
  - SOMNOLENCE [None]
